FAERS Safety Report 26205730 (Version 1)
Quarter: 2025Q4

REPORT INFORMATION
  Report Type: Spontaneous
  Country: EU (occurrence: EU)
  Receive Date: 20251229
  Receipt Date: 20251229
  Transmission Date: 20260118
  Serious: Yes (Other)
  Sender: AUROBINDO
  Company Number: EU-ELI_LILLY_AND_COMPANY-DE202510016213

PATIENT
  Sex: Female

DRUGS (4)
  1. LETROZOLE [Suspect]
     Active Substance: LETROZOLE
     Indication: Product used for unknown indication
     Dosage: UNK
     Route: 065
  2. ABEMACICLIB [Suspect]
     Active Substance: ABEMACICLIB
     Indication: Breast cancer
     Dosage: 200 MILLIGRAM, ONCE A DAY
     Route: 061
     Dates: start: 20241015, end: 202502
  3. ABEMACICLIB [Suspect]
     Active Substance: ABEMACICLIB
     Dosage: UNK
     Route: 061
  4. LOPERAMIDE [Concomitant]
     Active Substance: LOPERAMIDE
     Indication: Product used for unknown indication
     Dosage: UNK
     Route: 065

REACTIONS (14)
  - Immunosuppression [Unknown]
  - Pain in extremity [Recovered/Resolved]
  - Dermatitis acneiform [Recovering/Resolving]
  - Erythema [Unknown]
  - Peripheral coldness [Unknown]
  - Arthralgia [Unknown]
  - Diarrhoea [Recovered/Resolved]
  - Infection [Recovered/Resolved]
  - Heart rate increased [Not Recovered/Not Resolved]
  - Musculoskeletal pain [Recovering/Resolving]
  - Peripheral swelling [Unknown]
  - Inflammation [Unknown]
  - White blood cell count decreased [Unknown]
  - Folliculitis [Unknown]
